FAERS Safety Report 24383491 (Version 4)
Quarter: 2025Q3

REPORT INFORMATION
  Report Type: Spontaneous
  Country: KR (occurrence: KR)
  Receive Date: 20241001
  Receipt Date: 20250707
  Transmission Date: 20251021
  Serious: Yes (Death, Life-Threatening, Other)
  Sender: NOVARTIS
  Company Number: KR-002147023-NVSC2024KR193490

PATIENT
  Age: 70 Year
  Sex: Male
  Weight: 62 kg

DRUGS (1)
  1. KYMRIAH [Suspect]
     Active Substance: TISAGENLECLEUCEL
     Indication: Diffuse large B-cell lymphoma
     Route: 042
     Dates: start: 20240925, end: 20240925

REACTIONS (6)
  - Diffuse large B-cell lymphoma [Fatal]
  - Malignant neoplasm progression [Fatal]
  - Renal failure [Unknown]
  - Respiratory failure [Unknown]
  - Pyrexia [Recovered/Resolved]
  - Stupor [Unknown]

NARRATIVE: CASE EVENT DATE: 20240925
